FAERS Safety Report 7108323-2 (Version None)
Quarter: 2010Q4

REPORT INFORMATION
  Report Type: 
  Country: None (occurrence: None)
  Receive Date: 20101117
  Receipt Date: 20101105
  Transmission Date: 20110411
  Serious: Yes (Other)
  Sender: FDA-Public Use
  Company Number: FR-ROCHE-739555

PATIENT
  Sex: Female
  Weight: 56 kg

DRUGS (6)
  1. BEVACIZUMAB [Suspect]
     Dosage: FREQUENCY:J1-J14, LAST DOSE PRIOR TO SAE:14 OCT 2010
     Route: 042
     Dates: start: 20100408
  2. PACLITAXEL [Suspect]
     Dosage: FREQUENCY:WEEKLY, LAST DOSE PRIOR TO SAE:14 OCT 2010
     Route: 042
     Dates: start: 20100408
  3. SEROPRAM [Concomitant]
     Dates: start: 20091202
  4. LEXOMIL [Concomitant]
     Dates: start: 20090530
  5. PRIMPERAM [Concomitant]
     Dates: start: 20091202
  6. STILNOX [Concomitant]
     Dates: start: 20090624

REACTIONS (1)
  - BONE DISORDER [None]
